FAERS Safety Report 22082705 (Version 2)
Quarter: 2023Q2

REPORT INFORMATION
  Report Type: Spontaneous
  Country: JP (occurrence: JP)
  Receive Date: 20230310
  Receipt Date: 20230424
  Transmission Date: 20230721
  Serious: Yes (Death, Hospitalization, Other)
  Sender: FDA-Public Use
  Company Number: JP-ASTELLAS-2023JP000242

PATIENT
  Age: 86 Year
  Sex: Male

DRUGS (6)
  1. PADCEV [Suspect]
     Active Substance: ENFORTUMAB VEDOTIN-EJFV
     Indication: Metastatic carcinoma of the bladder
     Route: 042
     Dates: start: 20221212, end: 20221226
  2. PADCEV [Suspect]
     Active Substance: ENFORTUMAB VEDOTIN-EJFV
     Route: 042
     Dates: start: 20230123, end: 20230123
  3. DAYVIGO [Concomitant]
     Active Substance: LEMBOREXANT
     Indication: Insomnia
     Route: 048
     Dates: end: 20230217
  4. SILODOSIN [Concomitant]
     Active Substance: SILODOSIN
     Indication: Dysuria
     Route: 048
     Dates: end: 20230217
  5. TOVIAZ [Concomitant]
     Active Substance: FESOTERODINE FUMARATE
     Indication: Dysuria
     Route: 048
     Dates: end: 20230217
  6. VIBEGRON [Concomitant]
     Active Substance: VIBEGRON
     Indication: Dysuria
     Route: 048
     Dates: end: 20230217

REACTIONS (3)
  - Intestinal obstruction [Fatal]
  - Decreased appetite [Fatal]
  - Skin disorder [Unknown]

NARRATIVE: CASE EVENT DATE: 20221226
